FAERS Safety Report 17750587 (Version 1)
Quarter: 2020Q2

REPORT INFORMATION
  Report Type: Spontaneous
  Country: FR (occurrence: FR)
  Receive Date: 20200506
  Receipt Date: 20200506
  Transmission Date: 20200714
  Serious: Yes (Hospitalization)
  Sender: FDA-Public Use
  Company Number: FR-ACCORD-180984

PATIENT
  Age: 75 Year
  Sex: Male

DRUGS (11)
  1. METFORMIN [Concomitant]
     Active Substance: METFORMIN HYDROCHLORIDE
  2. PACLITAXEL AHCL [Suspect]
     Active Substance: PACLITAXEL
     Indication: LUNG ADENOCARCINOMA
     Route: 042
     Dates: start: 20191125, end: 20191125
  3. EPLERENONE. [Concomitant]
     Active Substance: EPLERENONE
  4. PANTOPRAZOLE [Concomitant]
     Active Substance: PANTOPRAZOLE
  5. TERBUTALINE [Concomitant]
     Active Substance: TERBUTALINE
  6. FUROSEMIDE. [Concomitant]
     Active Substance: FUROSEMIDE
  7. FLUINDIONE [Concomitant]
     Active Substance: FLUINDIONE
  8. VERAPAMIL [Concomitant]
     Active Substance: VERAPAMIL HYDROCHLORIDE
  9. PERINDOPRIL [Concomitant]
     Active Substance: PERINDOPRIL
  10. IPRATROPIUM [Concomitant]
     Active Substance: IPRATROPIUM
  11. POTASSIUM [Concomitant]
     Active Substance: POTASSIUM

REACTIONS (1)
  - Tremor [Recovered/Resolved]

NARRATIVE: CASE EVENT DATE: 20191125
